FAERS Safety Report 5138256-2 (Version None)
Quarter: 2006Q4

REPORT INFORMATION
  Report Type: 
  Country: None (occurrence: None)
  Receive Date: 20061025
  Receipt Date: 20061025
  Transmission Date: 20070319
  Serious: Yes (Hospitalization)
  Sender: FDA-Public Use
  Company Number: None

PATIENT
  Age: 28 Year
  Sex: Male
  Weight: 90.4 kg

DRUGS (1)
  1. ISOVUE-300 [Suspect]
     Indication: COMPUTERISED TOMOGRAM
     Dosage: 130 ML IV
     Route: 042

REACTIONS (4)
  - RESPIRATORY RATE INCREASED [None]
  - SNEEZING [None]
  - THROAT TIGHTNESS [None]
  - URTICARIA [None]
